FAERS Safety Report 4521995-1 (Version None)
Quarter: 2004Q4

REPORT INFORMATION
  Report Type: 
  Country: None (occurrence: None)
  Receive Date: 20041207
  Receipt Date: 20041119
  Transmission Date: 20050328
  Serious: Yes (Hospitalization)
  Sender: FDA-Public Use
  Company Number: USA040669271

PATIENT
  Age: 48 Year
  Sex: Female
  Weight: 63 kg

DRUGS (7)
  1. FORTEO [Suspect]
     Indication: OSTEOPOROSIS
     Dosage: 20 UG DAY
     Dates: start: 20030604
  2. ESTROGENS CONJUGATED W/ MEDROXYPROGESTERONE [Concomitant]
  3. CALCIUM CARBONATE W/VITAMIN D NOS [Concomitant]
  4. SUSTAIN-TEARS [Concomitant]
  5. BONE MINERAL DENSITY/Z [Concomitant]
  6. BONE MINERAL DENSITY/T [Concomitant]
  7. BONE MINERAL DENSITY/Z [Concomitant]

REACTIONS (6)
  - FEELING ABNORMAL [None]
  - HEADACHE [None]
  - HOT FLUSH [None]
  - OVARIAN CYST [None]
  - PHARMACEUTICAL PRODUCT COMPLAINT [None]
  - VOMITING [None]
